FAERS Safety Report 4433541-1 (Version None)
Quarter: 2004Q3

REPORT INFORMATION
  Report Type: 
  Country: None (occurrence: None)
  Receive Date: 20040824
  Receipt Date: 20040812
  Transmission Date: 20050211
  Serious: Yes (Hospitalization, Other)
  Sender: FDA-Public Use
  Company Number: 2004228227US

PATIENT
  Sex: Female

DRUGS (11)
  1. DETROL LA [Suspect]
     Indication: URINARY INCONTINENCE
     Dosage: 4 MG, QD, ORAL
     Route: 048
     Dates: start: 20000101
  2. SYNTHROID [Concomitant]
  3. FLEXERIL [Concomitant]
  4. ALBUTEROL [Concomitant]
  5. NEXIUM [Concomitant]
  6. TRAZODONE [Concomitant]
  7. TRIAMTERENE [Concomitant]
  8. EVISTA [Concomitant]
  9. CALCIUM [Concomitant]
  10. VITAMIN B-12 [Concomitant]
  11. DIURETIC (METHYCLOTHIAZIDE) [Concomitant]

REACTIONS (16)
  - BLOOD CHOLESTEROL INCREASED [None]
  - CARDIAC DISORDER [None]
  - CONSTIPATION [None]
  - DRUG INEFFECTIVE [None]
  - DRY MOUTH [None]
  - DYSPNOEA [None]
  - KERATOCONJUNCTIVITIS SICCA [None]
  - LIVER DISORDER [None]
  - PANCREATIC DISORDER [None]
  - RENAL DISORDER [None]
  - SHOCK [None]
  - SPEECH DISORDER [None]
  - SWELLING [None]
  - URINARY RETENTION [None]
  - VAGINAL ODOUR [None]
  - WEIGHT FLUCTUATION [None]
